FAERS Safety Report 10490291 (Version 2)
Quarter: 2015Q1

REPORT INFORMATION
  Report Type: Report from Study
  Country: AT (occurrence: AT)
  Receive Date: 20141002
  Receipt Date: 20150128
  Transmission Date: 20150720
  Serious: Yes (Hospitalization)
  Sender: FDA-Public Use
  Company Number: AT-CELGENE-009-21660-14093788

PATIENT
  Age: 61 Year
  Sex: Male

DRUGS (7)
  1. LAEVOLAC [Concomitant]
     Active Substance: LACTULOSE
     Indication: CONSTIPATION
     Dosage: EC
     Route: 065
  2. XANOR [Concomitant]
     Active Substance: ALPRAZOLAM
     Indication: DEPRESSION
  3. HYDAL RETARD [Concomitant]
     Active Substance: HYDROMORPHONE HYDROCHLORIDE
     Indication: ABDOMINAL PAIN
     Route: 065
  4. FELICIUM [Concomitant]
     Indication: DEPRESSION
     Route: 065
  5. ABRAXANE [Suspect]
     Active Substance: PACLITAXEL
     Indication: PANCREATIC CARCINOMA METASTATIC
     Route: 065
     Dates: start: 20140414, end: 20140414
  6. XANOR [Concomitant]
     Active Substance: ALPRAZOLAM
     Indication: ANXIETY
     Route: 065
  7. SERACTIL [Concomitant]
     Active Substance: DEXIBUPROFEN
     Indication: ABDOMINAL PAIN
     Dosage: 400/614
     Route: 065

REACTIONS (1)
  - Ischaemic stroke [Recovered/Resolved with Sequelae]

NARRATIVE: CASE EVENT DATE: 20140417
